FAERS Safety Report 19641315 (Version 1)
Quarter: 2021Q3

REPORT INFORMATION
  Report Type: Spontaneous
  Country: IT (occurrence: IT)
  Receive Date: 20210730
  Receipt Date: 20210730
  Transmission Date: 20211014
  Serious: Yes (Hospitalization)
  Sender: FDA-Public Use
  Company Number: IT-ASTRAZENECA-2021A638717

PATIENT
  Age: 70 Year
  Sex: Male

DRUGS (9)
  1. CARDIOASPIRIN [Suspect]
     Active Substance: ASPIRIN
     Indication: MYOCARDIAL INFARCTION
     Route: 048
     Dates: start: 20210301, end: 20210702
  2. ZETIA [Concomitant]
     Active Substance: EZETIMIBE
  3. BRILIQUE [Suspect]
     Active Substance: TICAGRELOR
     Indication: ACUTE MYOCARDIAL INFARCTION
     Route: 048
     Dates: start: 20210301, end: 20210702
  4. ELIQUIS [Suspect]
     Active Substance: APIXABAN
     Indication: ATRIAL FIBRILLATION
     Route: 048
     Dates: start: 20210401, end: 20210702
  5. ESKIM [Concomitant]
     Active Substance: OMEGA-3 FATTY ACIDS
  6. LUVION [Concomitant]
  7. APIDRA [Concomitant]
     Active Substance: INSULIN GLULISINE
  8. LANTUS [Concomitant]
     Active Substance: INSULIN GLARGINE
  9. TORVAST [Concomitant]
     Active Substance: ATORVASTATIN
     Dosage: CON FILM RIVESTITE COMPRESSION

REACTIONS (7)
  - Gastroduodenal haemorrhage [Unknown]
  - Metabolic acidosis [Unknown]
  - Rectal haemorrhage [Unknown]
  - Shock haemorrhagic [Unknown]
  - Anaemia [Unknown]
  - Melaena [Unknown]
  - Hypotension [Unknown]

NARRATIVE: CASE EVENT DATE: 20210702
